FAERS Safety Report 7725692-0 (Version None)
Quarter: 2011Q3

REPORT INFORMATION
  Report Type: 
  Country: None (occurrence: None)
  Receive Date: 20110902
  Receipt Date: 20110830
  Transmission Date: 20111222
  Serious: Yes (Death, Hospitalization)
  Sender: FDA-Public Use
  Company Number: PHHY2011CR77245

PATIENT
  Sex: Male

DRUGS (9)
  1. CARDIOASPIRINA [Concomitant]
     Dosage: UNK UKN, UNK
  2. LOVASTATIN [Concomitant]
     Dosage: UNK UKN, UNK
  3. IRBESARTAN [Concomitant]
     Dosage: UNK UKN, UNK
  4. INSULIN [Concomitant]
     Dosage: UNK UKN, UNK
  5. AMLODIPINE [Concomitant]
     Dosage: UNK UKN, UNK
  6. EXELON [Suspect]
     Indication: DEMENTIA ALZHEIMER'S TYPE
     Dosage: 9.5 MG, 1 PATCH PER DAY
     Route: 062
  7. FUROSEMIDE [Concomitant]
     Dosage: UNK UKN, UNK
  8. FLUOXETINE [Concomitant]
     Dosage: UNK UKN, UNK
  9. BETHANECHOL [Concomitant]
     Dosage: UNK UKN, UNK

REACTIONS (2)
  - DEATH [None]
  - MYOCARDIAL INFARCTION [None]
